FAERS Safety Report 15245854 (Version 1)
Quarter: 2018Q3

REPORT INFORMATION
  Report Type: Report from Study
  Country: NL (occurrence: NL)
  Receive Date: 20180806
  Receipt Date: 20180806
  Transmission Date: 20181010
  Serious: Yes (Other)
  Sender: FDA-Public Use
  Company Number: PHHY2018NL063070

PATIENT
  Sex: Female

DRUGS (1)
  1. SANDOSTATIN LAR DEPOT [Suspect]
     Active Substance: OCTREOTIDE ACETATE
     Indication: NEUROENDOCRINE TUMOUR
     Dosage: UNK UNK, Q3W ( (30 MG/2ML))
     Route: 030

REACTIONS (3)
  - Osteoporosis [Recovering/Resolving]
  - Spinal compression fracture [Recovering/Resolving]
  - Inappropriate schedule of drug administration [Unknown]
